FAERS Safety Report 25832506 (Version 1)
Quarter: 2025Q3

REPORT INFORMATION
  Report Type: Spontaneous
  Country: EU (occurrence: EU)
  Receive Date: 20250922
  Receipt Date: 20250922
  Transmission Date: 20251021
  Serious: Yes (Hospitalization, Other)
  Sender: AMGEN
  Company Number: None

PATIENT
  Age: 44 Year
  Sex: Female

DRUGS (1)
  1. ADALIMUMAB [Suspect]
     Active Substance: ADALIMUMAB
     Indication: Crohn^s disease
     Dosage: 40 MG
     Route: 058
     Dates: start: 20241122

REACTIONS (3)
  - Myelitis transverse [Recovering/Resolving]
  - Demyelination [Recovering/Resolving]
  - Hemihypoaesthesia [Recovering/Resolving]

NARRATIVE: CASE EVENT DATE: 20250820
